FAERS Safety Report 6042988-1 (Version None)
Quarter: 2009Q1

REPORT INFORMATION
  Report Type: 
  Country: None (occurrence: None)
  Receive Date: 20090119
  Receipt Date: 20090106
  Transmission Date: 20090719
  Serious: Yes (Other)
  Sender: FDA-Public Use
  Company Number: BR-ROCHE-597713

PATIENT
  Sex: Male
  Weight: 77 kg

DRUGS (2)
  1. ROACUTAN [Suspect]
     Indication: ACNE
     Route: 048
     Dates: start: 20080501
  2. ROACUTAN [Suspect]
     Dosage: INCREASED
     Route: 048
     Dates: end: 20081101

REACTIONS (2)
  - ARTHROPATHY [None]
  - LIGAMENT INJURY [None]
